FAERS Safety Report 24238817 (Version 2)
Quarter: 2024Q3

REPORT INFORMATION
  Report Type: Spontaneous
  Country: US (occurrence: US)
  Receive Date: 20240822
  Receipt Date: 20240909
  Transmission Date: 20241017
  Serious: Yes (Death, Life-Threatening, Hospitalization)
  Sender: TEVA
  Company Number: US-TEVA-VS-3234653

PATIENT
  Age: 81 Year
  Sex: Female

DRUGS (4)
  1. AMIODARONE [Suspect]
     Active Substance: AMIODARONE
     Indication: Tachyarrhythmia
     Route: 065
  2. HEPARIN [Concomitant]
     Active Substance: HEPARIN SODIUM
     Indication: Product used for unknown indication
     Dosage: INFUSION
     Route: 065
  3. FUROSEMIDE [Suspect]
     Active Substance: FUROSEMIDE
     Indication: Ejection fraction decreased
     Route: 065
  4. PEMBROLIZUMAB [Suspect]
     Active Substance: PEMBROLIZUMAB
     Indication: Endometrial cancer
     Route: 065

REACTIONS (2)
  - Myocarditis [Fatal]
  - Drug ineffective [Unknown]
